FAERS Safety Report 13904660 (Version 1)
Quarter: 2017Q3

REPORT INFORMATION
  Report Type: Spontaneous
  Country: US (occurrence: US)
  Receive Date: 20170824
  Receipt Date: 20170824
  Transmission Date: 20171127
  Serious: Yes (Other)
  Sender: FDA-Public Use
  Company Number: None

PATIENT
  Age: 79 Year
  Sex: Male
  Weight: 94.5 kg

DRUGS (1)
  1. CHLORHEXIDINE GLUCONATE RINSE [Suspect]
     Active Substance: CHLORHEXIDINE GLUCONATE
     Indication: NONINFECTIVE GINGIVITIS
     Dosage: ?          QUANTITY:1.5 OUNCE(S);?
     Route: 048
     Dates: start: 20170817, end: 20170817

REACTIONS (3)
  - Epistaxis [None]
  - Dry mouth [None]
  - Dizziness [None]

NARRATIVE: CASE EVENT DATE: 20170817
